FAERS Safety Report 4791144-3 (Version None)
Quarter: 2005Q4

REPORT INFORMATION
  Report Type: 
  Country: None (occurrence: None)
  Receive Date: 20051005
  Receipt Date: 20050919
  Transmission Date: 20060501
  Serious: Yes (Hospitalization)
  Sender: FDA-Public Use
  Company Number: ERP05000139

PATIENT
  Age: 60 Year
  Sex: Male

DRUGS (9)
  1. DANTRIUM [Suspect]
     Indication: MUSCLE SPASTICITY
     Dosage: 25 MG, 4/DAY, ORAL
     Route: 048
     Dates: start: 20050301, end: 20050920
  2. PLAVIX [Concomitant]
  3. PERINDOPRIL [Concomitant]
  4. FUROSEMIDE [Concomitant]
  5. AERIUS (DESLORATADINE) [Concomitant]
  6. ATORVASTATIN CALCIUM [Concomitant]
  7. HYDROXYZINE HCL [Concomitant]
  8. FLUOXETINE [Concomitant]
  9. METFORMIN (METFORMIN) [Concomitant]

REACTIONS (10)
  - ADULT T-CELL LYMPHOMA/LEUKAEMIA [None]
  - BODY TEMPERATURE INCREASED [None]
  - CYTOLYTIC HEPATITIS [None]
  - DERMATITIS EXFOLIATIVE [None]
  - DIET REFUSAL [None]
  - GENERAL PHYSICAL HEALTH DETERIORATION [None]
  - LYMPHADENOPATHY [None]
  - LYMPHOCYTOSIS [None]
  - LYMPHOMA [None]
  - PAIN [None]
